FAERS Safety Report 4456639-0 (Version None)
Quarter: 2004Q3

REPORT INFORMATION
  Report Type: 
  Country: None (occurrence: None)
  Receive Date: 20040921
  Receipt Date: 20040914
  Transmission Date: 20050211
  Serious: Yes (Life-Threatening)
  Sender: FDA-Public Use
  Company Number: 2004-120230-NL

PATIENT
  Sex: Male

DRUGS (1)
  1. ROCURONIUM BROMIDE [Suspect]

REACTIONS (2)
  - CARDIO-RESPIRATORY ARREST [None]
  - MEDICATION ERROR [None]
